FAERS Safety Report 12933129 (Version 1)
Quarter: 2016Q4

REPORT INFORMATION
  Report Type: Spontaneous
  Country: JP (occurrence: JP)
  Receive Date: 20161111
  Receipt Date: 20161111
  Transmission Date: 20170207
  Serious: Yes (Death, Life-Threatening, Hospitalization, Other)
  Sender: FDA-Public Use
  Company Number: JP-TEVA-2016-JP-002540J

PATIENT
  Age: 80 Year
  Sex: Male
  Weight: 45 kg

DRUGS (65)
  1. CILOSTAZOL. [Concomitant]
     Active Substance: CILOSTAZOL
     Route: 065
     Dates: end: 20160519
  2. PROCHLORPERAZINE MESILATE [Concomitant]
     Route: 065
     Dates: end: 20160519
  3. SULFAMETHOXAZOLE [Concomitant]
     Active Substance: SULFAMETHOXAZOLE
     Route: 065
     Dates: start: 20160517, end: 20160620
  4. TRIMETHOPRIM. [Concomitant]
     Active Substance: TRIMETHOPRIM
     Route: 065
     Dates: start: 20160517, end: 20160620
  5. OMEPRAZOLE. [Concomitant]
     Active Substance: OMEPRAZOLE
     Route: 065
     Dates: start: 20160521, end: 20160623
  6. HEPARIN SODIUM. [Concomitant]
     Active Substance: HEPARIN SODIUM
     Route: 065
     Dates: start: 20160521, end: 20160523
  7. PREDNISOLONE SODIUM SUCCINATE [Concomitant]
     Active Substance: PREDNISOLONE SODIUM SUCCINATE
     Route: 065
     Dates: start: 20160529, end: 20160531
  8. DOPAMINE HYDROCHLORIDE. [Concomitant]
     Active Substance: DOPAMINE HYDROCHLORIDE
     Route: 065
     Dates: start: 20160522, end: 20160523
  9. APIXABAN [Concomitant]
     Active Substance: APIXABAN
     Route: 065
     Dates: start: 20160620, end: 20160622
  10. GLYCERIN. [Concomitant]
     Active Substance: GLYCERIN
     Route: 065
     Dates: start: 20160621, end: 20160621
  11. VELCADE [Suspect]
     Active Substance: BORTEZOMIB
     Indication: PLASMA CELL MYELOMA
     Dosage: 1.8 MILLIGRAM DAILY;
     Route: 058
     Dates: start: 20160517, end: 20160517
  12. MAGNESIUM OXIDE. [Concomitant]
     Active Substance: MAGNESIUM OXIDE
     Route: 065
     Dates: end: 20160519
  13. SENNOSIDE [Concomitant]
     Active Substance: SENNOSIDES
     Route: 065
     Dates: start: 20160427, end: 20160519
  14. METOCLOPRAMIDE. [Concomitant]
     Active Substance: METOCLOPRAMIDE
     Route: 065
     Dates: start: 20160516, end: 20160519
  15. MICAFUNGIN SODIUM [Concomitant]
     Active Substance: MICAFUNGIN SODIUM
     Route: 065
     Dates: start: 20160520
  16. FLURBIPROFEN AXETIL [Concomitant]
     Active Substance: FLURBIPROFEN AXETIL
     Route: 065
     Dates: start: 20160524, end: 20160707
  17. ACETAMINOPHEN. [Concomitant]
     Active Substance: ACETAMINOPHEN
     Route: 065
     Dates: start: 20160622
  18. OXYCODONE HYDROCHLORIDE. [Concomitant]
     Active Substance: OXYCODONE HYDROCHLORIDE
     Route: 065
     Dates: start: 20160520, end: 20160520
  19. GLIMEPIRIDE. [Concomitant]
     Active Substance: GLIMEPIRIDE
     Route: 065
     Dates: end: 20160519
  20. SODIUM RABEPRAZOLE [Concomitant]
     Active Substance: RABEPRAZOLE SODIUM
     Route: 065
     Dates: end: 20160519
  21. PREGABALIN. [Concomitant]
     Active Substance: PREGABALIN
     Route: 065
     Dates: end: 20160519
  22. DORIPENEM [Concomitant]
     Active Substance: DORIPENEM
     Route: 065
     Dates: start: 20160519, end: 20160720
  23. FAMOTIDINE. [Concomitant]
     Active Substance: FAMOTIDINE
     Route: 065
     Dates: start: 20160520, end: 20160520
  24. PANTHENOL [Concomitant]
     Active Substance: PANTHENOL
     Route: 065
     Dates: start: 20160527, end: 20160527
  25. RAMELTEON [Concomitant]
     Active Substance: RAMELTEON
     Route: 065
     Dates: start: 20160604, end: 20160621
  26. ADENOSINE TRIPHOSPHATE, DISODIUM SALT [Concomitant]
     Route: 065
     Dates: start: 20160521, end: 20160521
  27. SODIUM LACTATE. [Concomitant]
     Active Substance: SODIUM LACTATE
     Route: 065
     Dates: start: 20160521, end: 20160521
  28. ESOMEPRAZOLE MAGNESIUM. [Concomitant]
     Active Substance: ESOMEPRAZOLE MAGNESIUM
     Route: 065
     Dates: start: 20160615, end: 20160622
  29. NORADRENALIN [Concomitant]
     Active Substance: NOREPINEPHRINE\NOREPINEPHRINE BITARTRATE
     Route: 065
     Dates: start: 20160627, end: 20160627
  30. PREDNISOLONE TABLETS 5MG. [Suspect]
     Active Substance: PREDNISOLONE
     Indication: PLASMA CELL MYELOMA
     Dosage: 80 MILLIGRAM DAILY;
     Route: 048
     Dates: start: 20160518, end: 20160519
  31. MECOBALAMIN [Concomitant]
     Active Substance: METHYLCOBALAMIN
     Route: 065
     Dates: end: 20160519
  32. L-CARBOCYSTEINE [Concomitant]
     Active Substance: CARBOCYSTEINE
     Route: 065
     Dates: start: 20160519
  33. ACICLOVIR [Concomitant]
     Active Substance: ACYCLOVIR
     Route: 065
     Dates: start: 20160517, end: 20160519
  34. AMINO ACIDS NOS W/ELECTROLYTES NOS/GLUCOSE/VI [Concomitant]
     Route: 065
     Dates: start: 20160519, end: 20160622
  35. INSULIN HUMAN [Concomitant]
     Active Substance: INSULIN HUMAN
     Route: 065
     Dates: start: 20160520, end: 20160528
  36. GLUCOSE [Concomitant]
     Active Substance: DEXTROSE
     Route: 065
     Dates: start: 20160527, end: 20160528
  37. HALOPERIDOL. [Concomitant]
     Active Substance: HALOPERIDOL
     Route: 065
     Dates: start: 20160524, end: 20160524
  38. LANDIOLOL HYDROCHLORIDE [Concomitant]
     Active Substance: LANDIOLOL HYDROCHLORIDE
     Route: 065
     Dates: start: 20160521, end: 20160521
  39. GLUCOSE W/SODIUM CHLORIDE [Concomitant]
     Route: 065
     Dates: start: 20160521, end: 20160521
  40. BISOPROLOL [Concomitant]
     Active Substance: BISOPROLOL
     Route: 065
     Dates: start: 20160522
  41. PROPOFOL. [Concomitant]
     Active Substance: PROPOFOL
     Route: 065
     Dates: start: 20160523, end: 20160524
  42. MIANSERIN HYDROCHLORIDE [Concomitant]
     Active Substance: MIANSERIN HYDROCHLORIDE
     Route: 065
     Dates: start: 20160617, end: 20160621
  43. ACICLOVIR [Concomitant]
     Active Substance: ACYCLOVIR
     Route: 065
     Dates: start: 20160520, end: 20160623
  44. MELPHALAN [Suspect]
     Active Substance: MELPHALAN
     Indication: PLASMA CELL MYELOMA
     Dosage: 12 MILLIGRAM DAILY;
     Route: 048
     Dates: start: 20160517, end: 20160519
  45. AMBROXOL HYDROCHLORIDE [Concomitant]
     Active Substance: AMBROXOL HYDROCHLORIDE
     Route: 065
     Dates: end: 20160519
  46. ISOTONIC SODIUM CHLORIDE SOLUTION [Concomitant]
     Active Substance: SODIUM CHLORIDE
     Route: 065
     Dates: start: 20160627
  47. FUROSEMIDE. [Concomitant]
     Active Substance: FUROSEMIDE
     Route: 065
     Dates: start: 20160630, end: 20160630
  48. REBAMIPIDE [Concomitant]
     Active Substance: REBAMIPIDE
     Route: 065
     Dates: end: 20160519
  49. OXYCODONE HYDROCHLORIDE. [Concomitant]
     Active Substance: OXYCODONE HYDROCHLORIDE
     Route: 065
     Dates: start: 20160427, end: 20160519
  50. HEPARINOID [Concomitant]
     Active Substance: CHONDROITIN SULFATE (BOVINE)
     Route: 065
     Dates: start: 20160514
  51. ZOLEDRONIC ACID [Concomitant]
     Active Substance: ZOLEDRONIC ACID
     Route: 065
     Dates: start: 20160516
  52. BISOPROLOL FUMARATE. [Concomitant]
     Active Substance: BISOPROLOL FUMARATE
     Route: 065
     Dates: start: 20160620, end: 20160622
  53. MEPIVACAINE HYDROCHLORIDE. [Concomitant]
     Active Substance: MEPIVACAINE HYDROCHLORIDE
     Route: 065
     Dates: start: 20160627, end: 20160706
  54. DARATUMUMAB [Suspect]
     Active Substance: DARATUMUMAB
     Indication: PLASMA CELL MYELOMA
     Dosage: 720 MILLIGRAM DAILY;
     Route: 042
     Dates: start: 20160517, end: 20160519
  55. TRAMADOL HYDROCHLORIDE. [Concomitant]
     Active Substance: TRAMADOL HYDROCHLORIDE
     Route: 065
     Dates: end: 20160519
  56. WHITE PETROLATUM [Concomitant]
     Active Substance: PETROLATUM
     Route: 065
  57. DIAZEPAM. [Concomitant]
     Active Substance: DIAZEPAM
     Route: 065
     Dates: start: 20160622, end: 20160701
  58. POTASSIUM CHLORIDE. [Concomitant]
     Active Substance: POTASSIUM CHLORIDE
     Route: 065
     Dates: start: 20160623
  59. ACETAMINOPHEN. [Concomitant]
     Active Substance: ACETAMINOPHEN
     Route: 065
     Dates: start: 20160705, end: 20160705
  60. SODIUM GUALENATE HYDRATE [Concomitant]
     Active Substance: SODIUM GUALENATE MONOHYDRATE
     Route: 065
  61. HYDROXYZINE HYDROCHLORIDE. [Concomitant]
     Active Substance: HYDROXYZINE HYDROCHLORIDE
     Route: 065
     Dates: start: 20160528, end: 20160530
  62. RISPERIDONE. [Concomitant]
     Active Substance: RISPERIDONE
     Route: 065
     Dates: start: 20160602, end: 20160621
  63. METHYLPREDNISOLONE SODIUM SUCCINATE. [Concomitant]
     Active Substance: METHYLPREDNISOLONE SODIUM SUCCINATE
     Route: 065
     Dates: start: 20160519, end: 20160627
  64. BIFIDOBACTERIUM NOS [Concomitant]
     Route: 065
     Dates: start: 20160628, end: 20160701
  65. RISPERIDONE. [Concomitant]
     Active Substance: RISPERIDONE
     Route: 065
     Dates: start: 20160603, end: 20160609

REACTIONS (19)
  - Acute respiratory failure [Fatal]
  - Hypoglycaemia [Unknown]
  - Pneumonia aspiration [Unknown]
  - Tumour lysis syndrome [Not Recovered/Not Resolved]
  - Decreased appetite [Unknown]
  - Bradycardia [Unknown]
  - Cardiac arrest [Recovered/Resolved]
  - Pneumonia [Recovered/Resolved]
  - Decubitus ulcer [Unknown]
  - Pleural effusion [Unknown]
  - Spinal compression fracture [Unknown]
  - Sinus tachycardia [Unknown]
  - Gangrene [Unknown]
  - Haematochezia [Unknown]
  - Arrhythmia [Unknown]
  - Benign prostatic hyperplasia [Unknown]
  - Delirium [Unknown]
  - Hypokalaemia [Unknown]
  - Ilium fracture [Unknown]

NARRATIVE: CASE EVENT DATE: 20160519
